FAERS Safety Report 9749070 (Version 1)
Quarter: 2013Q4

REPORT INFORMATION
  Report Type: Spontaneous
  Country: US (occurrence: US)
  Receive Date: 20131212
  Receipt Date: 20131212
  Transmission Date: 20140711
  Serious: Yes (Other)
  Sender: FDA-Public Use
  Company Number: US-TEVA-390799USA

PATIENT
  Sex: Female
  Weight: 118.04 kg

DRUGS (1)
  1. PARAGARD 380A [Suspect]
     Indication: CONTRACEPTION
     Route: 015
     Dates: start: 20130201, end: 20130307

REACTIONS (4)
  - Device dislocation [Recovered/Resolved]
  - Metrorrhagia [Unknown]
  - Abdominal pain [Unknown]
  - Pain [Unknown]
